FAERS Safety Report 25389587 (Version 1)
Quarter: 2025Q2

REPORT INFORMATION
  Report Type: Report from Study
  Country: NL (occurrence: NL)
  Receive Date: 20250603
  Receipt Date: 20250603
  Transmission Date: 20250716
  Serious: Yes (Other)
  Sender: MYLAN
  Company Number: NL-MYLANLABS-2025M1044933

PATIENT
  Age: 50 Year
  Sex: Male

DRUGS (4)
  1. FENTANYL [Suspect]
     Active Substance: FENTANYL
     Indication: Product used for unknown indication
  2. FENTANYL [Suspect]
     Active Substance: FENTANYL
     Route: 065
  3. FENTANYL [Suspect]
     Active Substance: FENTANYL
     Route: 065
  4. FENTANYL [Suspect]
     Active Substance: FENTANYL

REACTIONS (1)
  - Drug use disorder [Unknown]
